FAERS Safety Report 6004059-X (Version None)
Quarter: 2008Q4

REPORT INFORMATION
  Report Type: 
  Country: None (occurrence: None)
  Receive Date: 20081216
  Receipt Date: 20081211
  Transmission Date: 20090506
  Serious: Yes (Death, Hospitalization)
  Sender: FDA-Public Use
  Company Number: B0549865A

PATIENT
  Age: 5 Month
  Sex: Female

DRUGS (1)
  1. ZANTAC [Suspect]
     Indication: HYPERCHLORHYDRIA
     Dosage: 30MG PER DAY
     Route: 048
     Dates: start: 20001001

REACTIONS (2)
  - DYSPNOEA [None]
  - OVERDOSE [None]
